FAERS Safety Report 16260125 (Version 4)
Quarter: 2019Q2

REPORT INFORMATION
  Report Type: Spontaneous
  Country: US (occurrence: US)
  Receive Date: 20190501
  Receipt Date: 20190619
  Transmission Date: 20190711
  Serious: Yes (Other)
  Sender: FDA-Public Use
  Company Number: US-PFIZER INC-2019179174

PATIENT
  Age: 88 Year
  Sex: Female
  Weight: 63.5 kg

DRUGS (4)
  1. TIKOSYN [Suspect]
     Active Substance: DOFETILIDE
     Dosage: UNK UNK, 2X/DAY
     Route: 048
  2. METOPROLOL TARTRATE. [Concomitant]
     Active Substance: METOPROLOL TARTRATE
     Dosage: UNK
  3. TIKOSYN [Suspect]
     Active Substance: DOFETILIDE
     Dosage: 0.25 MG (OR 250 MCG), 2X/DAY
     Route: 048
  4. TIKOSYN [Suspect]
     Active Substance: DOFETILIDE
     Dosage: 0.25 MG (OR 250 MCG), 2X/DAY
     Route: 048

REACTIONS (9)
  - Hip fracture [Unknown]
  - Cough [Not Recovered/Not Resolved]
  - Nasopharyngitis [Recovered/Resolved]
  - Asthenia [Unknown]
  - Fatigue [Unknown]
  - Pain [Recovering/Resolving]
  - Visual impairment [Unknown]
  - Sneezing [Unknown]
  - Malaise [Unknown]
